FAERS Safety Report 8895862 (Version 3)
Quarter: 2017Q2

REPORT INFORMATION
  Report Type: Spontaneous
  Country: US (occurrence: US)
  Receive Date: 20121108
  Receipt Date: 20170628
  Transmission Date: 20170830
  Serious: Yes (Life-Threatening, Hospitalization, Other)
  Sender: FDA-Public Use
  Company Number: US-PFIZER INC-2012276062

PATIENT
  Age: 47 Year
  Sex: Male

DRUGS (5)
  1. METHADONE [Interacting]
     Active Substance: METHADONE HYDROCHLORIDE
     Indication: DRUG USE DISORDER
     Dosage: 10 MG, 3X/DAY
  2. LISINOPRIL AND HYDROCHLOROTHIAZIDE [Concomitant]
     Active Substance: HYDROCHLOROTHIAZIDE\LISINOPRIL
     Indication: HYPERTENSION
     Dosage: 20/12.5 MG ONCE DAILY
  3. BENZONATATE. [Concomitant]
     Active Substance: BENZONATATE
     Dosage: 100 MG, EVERY 8 HOURS AS NEEDED
  4. AZITHROMYCIN ANHYDROUS. [Suspect]
     Active Substance: AZITHROMYCIN ANHYDROUS
     Indication: UPPER RESPIRATORY TRACT INFECTION
     Dosage: UNK
  5. DEXTROMETHORPHAN HBR/DOXYLAMINE SUCCINATE/PARACETAMOL [Concomitant]
     Indication: VIRAL UPPER RESPIRATORY TRACT INFECTION
     Dosage: UNK

REACTIONS (4)
  - Medication error [Recovering/Resolving]
  - Electrocardiogram QT prolonged [Recovered/Resolved]
  - Drug interaction [Recovering/Resolving]
  - Cardiac arrest [Recovering/Resolving]
